FAERS Safety Report 6640916-9 (Version None)
Quarter: 2010Q1

REPORT INFORMATION
  Report Type: 
  Country: None (occurrence: None)
  Receive Date: 20100318
  Receipt Date: 20100303
  Transmission Date: 20100710
  Serious: No
  Sender: FDA-Public Use
  Company Number: US-B.I. PHARMACEUTICALS,INC./RIDGEFIELD-2010-BP-02623BP

PATIENT
  Age: 76 Year
  Sex: Male

DRUGS (2)
  1. SPIRIVA [Suspect]
     Dates: start: 20100101, end: 20100101
  2. COUMADIN [Concomitant]

REACTIONS (2)
  - DRY MOUTH [None]
  - MOUTH HAEMORRHAGE [None]
